FAERS Safety Report 25542814 (Version 1)
Quarter: 2025Q3

REPORT INFORMATION
  Report Type: Spontaneous
  Country: GB (occurrence: GB)
  Receive Date: 20250711
  Receipt Date: 20250711
  Transmission Date: 20251020
  Serious: Yes (Other)
  Sender: AZURITY PHARMACEUTICALS
  Company Number: GB-AZURITY PHARMACEUTICALS, INC.-AZR202506-001913

PATIENT
  Sex: Female

DRUGS (1)
  1. TRIPTORELIN [Suspect]
     Active Substance: TRIPTORELIN
     Indication: Uterine leiomyoma
     Route: 065

REACTIONS (2)
  - Osteopenia [Not Recovered/Not Resolved]
  - Medication error [Unknown]
